FAERS Safety Report 5778565-7 (Version None)
Quarter: 2008Q2

REPORT INFORMATION
  Report Type: 
  Country: None (occurrence: None)
  Receive Date: 20080618
  Receipt Date: 20080618
  Transmission Date: 20081010
  Serious: Yes (Life-Threatening, Other)
  Sender: FDA-Public Use
  Company Number: None

PATIENT
  Age: 55 Year
  Sex: Female
  Weight: 90.7194 kg

DRUGS (1)
  1. SPIRIVA [Suspect]
     Indication: ASTHMA
     Dosage: 1 CAPSULE DAILY INHAL
     Route: 055
     Dates: start: 20080509, end: 20080509

REACTIONS (5)
  - CHEST PAIN [None]
  - DYSPNOEA [None]
  - EYE PAIN [None]
  - TACHYCARDIA [None]
  - URTICARIA [None]
